FAERS Safety Report 7623569-2 (Version None)
Quarter: 2011Q3

REPORT INFORMATION
  Report Type: 
  Country: None (occurrence: None)
  Receive Date: 20110719
  Receipt Date: 20110719
  Transmission Date: 20111222
  Serious: Yes (Hospitalization)
  Sender: FDA-Public Use
  Company Number: None

PATIENT
  Age: 47 Year
  Sex: Female
  Weight: 80.4 kg

DRUGS (6)
  1. METRONIDAZOLE [Concomitant]
  2. DEMEROL [Concomitant]
  3. CIPROFLOXACIN [Suspect]
     Indication: DIVERTICULITIS
     Dosage: 400MG IV ONCE
     Route: 042
     Dates: start: 20110705
  4. CIPROFLOXACIN [Suspect]
     Indication: DIVERTICULITIS
     Dosage: 400MG IV ONCE
     Route: 042
     Dates: start: 20110707
  5. PHENERGAN HCL [Concomitant]
  6. OMEPRAZOLE [Concomitant]

REACTIONS (2)
  - ERYTHEMA [None]
  - DRUG HYPERSENSITIVITY [None]
